FAERS Safety Report 16923198 (Version 4)
Quarter: 2025Q1

REPORT INFORMATION
  Report Type: Spontaneous
  Country: US (occurrence: US)
  Receive Date: 20191016
  Receipt Date: 20250224
  Transmission Date: 20250408
  Serious: Yes (Hospitalization, Disabling, Other)
  Sender: AUROBINDO
  Company Number: US-AUROBINDO-AUR-APL-2019-066368

PATIENT
  Age: 59 Year
  Sex: Female

DRUGS (8)
  1. VANCOMYCIN [Suspect]
     Active Substance: VANCOMYCIN
     Indication: Clostridium difficile colitis
     Dosage: 500 MILLIGRAM, FOUR TIMES/DAY
     Route: 054
     Dates: start: 2018, end: 20181125
  2. VANCOMYCIN [Suspect]
     Active Substance: VANCOMYCIN
     Indication: Evidence based treatment
     Dosage: 250 MILLIGRAM, FOUR TIMES/DAY
     Route: 054
     Dates: start: 20181125, end: 20181202
  3. VANCOMYCIN [Suspect]
     Active Substance: VANCOMYCIN
     Dosage: 500 MILLIGRAM, FOUR TIMES/DAY
     Route: 048
     Dates: start: 2018, end: 2018
  4. VANCOMYCIN [Suspect]
     Active Substance: VANCOMYCIN
     Route: 042
     Dates: start: 20181118, end: 20181118
  5. MEROPENEM [Concomitant]
     Active Substance: MEROPENEM
     Indication: Evidence based treatment
     Route: 065
     Dates: start: 2018
  6. METRONIDAZOLE [Concomitant]
     Active Substance: METRONIDAZOLE
     Indication: Clostridium difficile colitis
     Route: 042
     Dates: start: 2018
  7. VORICONAZOLE [Concomitant]
     Active Substance: VORICONAZOLE
     Indication: Antifungal prophylaxis
     Route: 065
  8. LEVOTHYROXINE [Concomitant]
     Active Substance: LEVOTHYROXINE
     Indication: Hypothyroidism
     Route: 065

REACTIONS (13)
  - Deep vein thrombosis [Recovering/Resolving]
  - Cerebral infarction [Recovering/Resolving]
  - Quadriplegia [Recovering/Resolving]
  - Areflexia [Recovering/Resolving]
  - Gastrointestinal wall thickening [Recovered/Resolved]
  - Endocarditis [Recovering/Resolving]
  - Staphylococcal infection [Recovering/Resolving]
  - Nephropathy toxic [Recovering/Resolving]
  - Hypoacusis [Recovering/Resolving]
  - Renal impairment [Recovering/Resolving]
  - Paralysis [Recovering/Resolving]
  - Drug level increased [Recovering/Resolving]
  - Toxicity to various agents [Recovering/Resolving]

NARRATIVE: CASE EVENT DATE: 20180101
